FAERS Safety Report 7889489-3 (Version None)
Quarter: 2011Q4

REPORT INFORMATION
  Report Type: 
  Country: None (occurrence: None)
  Receive Date: 20111103
  Receipt Date: 20111028
  Transmission Date: 20120403
  Serious: Yes (Hospitalization, Other)
  Sender: FDA-Public Use
  Company Number: SE-SANOFI-AVENTIS-2011SA061691

PATIENT
  Age: 78 Year
  Sex: Female
  Weight: 63 kg

DRUGS (10)
  1. ASPIRIN [Concomitant]
     Dates: start: 20100610
  2. RAMIPRIL [Concomitant]
     Dates: start: 20110929
  3. METOPROLOL TARTRATE [Concomitant]
     Dates: start: 20110917
  4. SIMVASTATIN [Concomitant]
     Dates: start: 20100610
  5. BLINDED THERAPY [Suspect]
     Indication: ACUTE CORONARY SYNDROME
     Route: 065
     Dates: start: 20110822, end: 20110912
  6. RAMIPRIL [Concomitant]
     Dosage: 1.25 2X2
     Dates: start: 20110917, end: 20110928
  7. CLOPIDOGREL BISULFATE [Suspect]
     Route: 065
     Dates: start: 20110822, end: 20110912
  8. METOPROLOL TARTRATE [Concomitant]
     Dates: start: 20100610
  9. OMEPRAZOLE [Concomitant]
     Dates: start: 20100610
  10. RAMIPRIL [Concomitant]
     Dates: start: 20100610

REACTIONS (7)
  - MITRAL VALVE PROLAPSE [None]
  - EOSINOPHILIA [None]
  - CARDIAC FAILURE CONGESTIVE [None]
  - MYALGIA [None]
  - PYREXIA [None]
  - CONDITION AGGRAVATED [None]
  - MITRAL VALVE INCOMPETENCE [None]
